FAERS Safety Report 7170961-9 (Version None)
Quarter: 2010Q4

REPORT INFORMATION
  Report Type: 
  Country: None (occurrence: None)
  Receive Date: 20101206
  Receipt Date: 20101117
  Transmission Date: 20110411
  Serious: Yes (Death, Other)
  Sender: FDA-Public Use
  Company Number: 2010US004468

PATIENT
  Age: 66 Year
  Sex: Male

DRUGS (13)
  1. PROGRAF [Suspect]
     Indication: RENAL TRANSPLANT
     Dosage: 2 MG, BID, ORAL
     Route: 048
     Dates: start: 20060710, end: 20091122
  2. ASPIRIN [Concomitant]
  3. BACTRIM [Concomitant]
  4. COREG [Concomitant]
  5. CLONIDINE [Concomitant]
  6. IMDUR [Concomitant]
  7. LASIX [Concomitant]
  8. LIPITOR [Concomitant]
  9. TRICOR [Concomitant]
  10. PLAVIX [Concomitant]
  11. PLENDIL [Concomitant]
  12. PRANDIN [Concomitant]
  13. ZANTAC [Concomitant]

REACTIONS (3)
  - CEREBROVASCULAR ACCIDENT [None]
  - POST PROCEDURAL COMPLICATION [None]
  - VASCULAR GRAFT [None]
